FAERS Safety Report 7072244-4 (Version None)
Quarter: 2010Q4

REPORT INFORMATION
  Report Type: 
  Country: None (occurrence: None)
  Receive Date: 20101029
  Receipt Date: 20101022
  Transmission Date: 20110411
  Serious: No
  Sender: FDA-Public Use
  Company Number: A0888187A

PATIENT
  Age: 47 Year
  Sex: Male

DRUGS (2)
  1. RELENZA [Suspect]
     Indication: INFLUENZA
     Dosage: 10MG TWICE PER DAY
     Route: 055
     Dates: start: 20101019
  2. NO CONCURRENT MEDICATION [Concomitant]

REACTIONS (1)
  - DRUG ADMINISTRATION ERROR [None]
